FAERS Safety Report 6922917-6 (Version None)
Quarter: 2010Q3

REPORT INFORMATION
  Report Type: 
  Country: None (occurrence: None)
  Receive Date: 20100813
  Receipt Date: 20100804
  Transmission Date: 20110219
  Serious: Yes (Hospitalization)
  Sender: FDA-Public Use
  Company Number: PHHY2010MX48609

PATIENT
  Age: 31 Year
  Sex: Female

DRUGS (1)
  1. TEGRETOL [Suspect]
     Indication: EPILEPSY
     Dosage: 400 MG, QD
     Route: 048
     Dates: start: 20100701

REACTIONS (3)
  - AMNESIA [None]
  - DEPRESSION [None]
  - SCHIZOPHRENIA [None]
